FAERS Safety Report 8843092 (Version 6)
Quarter: 2018Q2

REPORT INFORMATION
  Report Type: Spontaneous
  Country: US (occurrence: US)
  Receive Date: 20121016
  Receipt Date: 20180613
  Transmission Date: 20180711
  Serious: Yes (Hospitalization, Disabling, Other)
  Sender: FDA-Public Use
  Company Number: US-009507513-1210USA006569

PATIENT
  Sex: Female
  Weight: 81.63 kg

DRUGS (12)
  1. ALENDRONATE SODIUM. [Suspect]
     Active Substance: ALENDRONATE SODIUM
     Dosage: 70 MG, UNK
     Route: 048
     Dates: start: 20100105, end: 20120303
  2. NITROFURANTOIN. [Concomitant]
     Active Substance: NITROFURANTOIN
     Indication: PRODUCT USED FOR UNKNOWN INDICATION
     Dosage: UNK, QD
     Route: 065
  3. ALENDRONATE SODIUM. [Suspect]
     Active Substance: ALENDRONATE SODIUM
     Indication: OSTEOPENIA
     Dosage: 70 MG, UNK
     Route: 048
     Dates: start: 20081206, end: 20090707
  4. CARDIZEM CD [Concomitant]
     Active Substance: DILTIAZEM HYDROCHLORIDE
     Indication: PRODUCT USED FOR UNKNOWN INDICATION
     Dosage: 300 MG, QD
     Route: 065
  5. FOSAMAX [Suspect]
     Active Substance: ALENDRONATE SODIUM
     Indication: OSTEOPENIA
     Dosage: 70 MG, QW
     Route: 048
     Dates: start: 20031031
  6. FOSAMAX [Suspect]
     Active Substance: ALENDRONATE SODIUM
     Indication: OSTEOPENIA
     Dosage: 35 MG, UNK
     Route: 048
     Dates: start: 20030217, end: 20060804
  7. DITROPAN XL [Concomitant]
     Active Substance: OXYBUTYNIN CHLORIDE
     Indication: PRODUCT USED FOR UNKNOWN INDICATION
     Dosage: UNK, QD
     Route: 065
  8. FOSAMAX [Suspect]
     Active Substance: ALENDRONATE SODIUM
     Dosage: 70 MG, UNK
     Route: 048
     Dates: start: 20060905, end: 20080323
  9. ALENDRONATE SODIUM. [Suspect]
     Active Substance: ALENDRONATE SODIUM
     Indication: OSTEOPENIA
     Dosage: 70 MG, UNK
     Route: 048
     Dates: start: 20080324, end: 20080801
  10. ALENDRONATE SODIUM. [Suspect]
     Active Substance: ALENDRONATE SODIUM
     Dosage: 70 MG, UNK
     Route: 048
     Dates: start: 20100308, end: 20100806
  11. ALENDRONATE SODIUM. [Suspect]
     Active Substance: ALENDRONATE SODIUM
     Dosage: 70 MG, UNK
     Route: 048
     Dates: start: 20091003
  12. AVALIDE [Concomitant]
     Active Substance: HYDROCHLOROTHIAZIDE\IRBESARTAN
     Indication: PRODUCT USED FOR UNKNOWN INDICATION
     Dosage: UNK, QD
     Route: 065

REACTIONS (38)
  - Hypercholesterolaemia [Unknown]
  - Osteoarthritis [Unknown]
  - Dyslipidaemia [Unknown]
  - Transfusion [Unknown]
  - Spinal compression fracture [Unknown]
  - Diverticulum intestinal [Unknown]
  - Spinal column stenosis [Unknown]
  - Glaucoma [Unknown]
  - Anaemia postoperative [Recovering/Resolving]
  - Bladder disorder [Unknown]
  - Intervertebral disc degeneration [Unknown]
  - Cataract [Unknown]
  - Haemorrhoids [Unknown]
  - Drug hypersensitivity [Unknown]
  - Hyperlipidaemia [Unknown]
  - Femur fracture [Not Recovered/Not Resolved]
  - Skeletal injury [Unknown]
  - Urinary tract infection [Unknown]
  - Oral surgery [Unknown]
  - Vertigo [Unknown]
  - Fall [Unknown]
  - Fall [Unknown]
  - Acute sinusitis [Unknown]
  - Carpal tunnel syndrome [Unknown]
  - Open reduction of fracture [Unknown]
  - Fall [Unknown]
  - Tooth disorder [Unknown]
  - Periodontal operation [Unknown]
  - Vascular insufficiency [Unknown]
  - Transient ischaemic attack [Unknown]
  - Arthritis [Unknown]
  - Fall [Unknown]
  - Depression [Unknown]
  - Anxiety [Unknown]
  - Tooth extraction [Unknown]
  - Fatigue [Unknown]
  - Lumbosacral radiculopathy [Unknown]
  - Diarrhoea [Unknown]

NARRATIVE: CASE EVENT DATE: 200310
